FAERS Safety Report 15665886 (Version 4)
Quarter: 2019Q1

REPORT INFORMATION
  Report Type: Spontaneous
  Country: BR (occurrence: BR)
  Receive Date: 20181128
  Receipt Date: 20190129
  Transmission Date: 20190417
  Serious: No
  Sender: FDA-Public Use
  Company Number: BR-PFIZER INC-2018162979

PATIENT
  Age: 75 Year
  Sex: Female

DRUGS (12)
  1. AMILORID [Concomitant]
     Dosage: UNK
     Dates: start: 2016
  2. DIAZEPAM. [Concomitant]
     Active Substance: DIAZEPAM
     Dosage: UNK
  3. VASOPRIL [ENALAPRIL MALEATE] [Concomitant]
     Dosage: UNK
     Dates: start: 2016
  4. CLORANA [Concomitant]
     Active Substance: HYDROCHLOROTHIAZIDE
     Dosage: UNK
     Dates: start: 2016
  5. DIOVAN [Concomitant]
     Active Substance: VALSARTAN
     Dosage: UNK
     Dates: start: 2016
  6. ICTUS [Concomitant]
     Active Substance: CARVEDILOL
     Dosage: UNK
     Dates: start: 2016
  7. DIACQUA [Concomitant]
     Dosage: UNK
     Dates: start: 2016
  8. LIPITOR [Suspect]
     Active Substance: ATORVASTATIN CALCIUM
     Indication: BLOOD CHOLESTEROL
     Dosage: 40 MG, 2X/DAY (2 TABLETS IN THE MORNING AND 2 TABLETS AT NIGHT)
  9. LIPITOR [Suspect]
     Active Substance: ATORVASTATIN CALCIUM
     Indication: BUNDLE BRANCH BLOCK RIGHT
     Dosage: 20 MG, 2X/DAY (ONE TABLET IN THE MORNING AND ONE TABLET AT NIGHT)
     Dates: end: 201812
  10. LOSARTAN. [Concomitant]
     Active Substance: LOSARTAN
     Dosage: UNK
  11. VALSARTAN. [Concomitant]
     Active Substance: VALSARTAN
     Dosage: UNK
     Dates: start: 2016
  12. LIPITOR [Suspect]
     Active Substance: ATORVASTATIN CALCIUM
     Indication: BUNDLE BRANCH BLOCK LEFT

REACTIONS (2)
  - Hypoaesthesia [Not Recovered/Not Resolved]
  - Product use issue [Unknown]
